FAERS Safety Report 15798553 (Version 1)
Quarter: 2019Q1

REPORT INFORMATION
  Report Type: Spontaneous
  Country: GB (occurrence: GB)
  Receive Date: 20190108
  Receipt Date: 20190108
  Transmission Date: 20190417
  Serious: Yes (Other)
  Sender: FDA-Public Use
  Company Number: GB-SA-2019SA003254

PATIENT
  Age: 67 Year
  Sex: Male
  Weight: 117.3 kg

DRUGS (8)
  1. CLOPIDOGREL [Concomitant]
     Active Substance: CLOPIDOGREL BISULFATE
     Indication: ANTICOAGULANT THERAPY
     Dosage: UNK
  2. TAMSULOSIN HYDROCHLORIDE. [Suspect]
     Active Substance: TAMSULOSIN HYDROCHLORIDE
     Indication: MICTURITION URGENCY
     Dosage: 400 UG, QD
     Route: 048
     Dates: start: 20181010, end: 20181028
  3. PANTOPRAZOLE [Concomitant]
     Active Substance: PANTOPRAZOLE
  4. ALLOPURINOL. [Concomitant]
     Active Substance: ALLOPURINOL
  5. IRBESARTAN. [Concomitant]
     Active Substance: IRBESARTAN
  6. FENOFIBRATE. [Concomitant]
     Active Substance: FENOFIBRATE
  7. INDAPAMIDE. [Concomitant]
     Active Substance: INDAPAMIDE
  8. ADCAL D3 [Concomitant]
     Active Substance: CALCIUM CARBONATE\CHOLECALCIFEROL

REACTIONS (4)
  - Drug ineffective [Unknown]
  - Ejaculation disorder [Not Recovered/Not Resolved]
  - Loss of libido [Not Recovered/Not Resolved]
  - Erectile dysfunction [Not Recovered/Not Resolved]
